FAERS Safety Report 8876186 (Version 2)
Quarter: 2012Q4

REPORT INFORMATION
  Report Type: 
  Country: GB (occurrence: GB)
  Receive Date: 20121023
  Receipt Date: 20121120
  Transmission Date: 20130627
  Serious: Yes (Hospitalization, Other)
  Sender: FDA-Public Use
  Company Number: GB-ABBOTT-12P-167-0996501-00

PATIENT
  Age: 51 Year
  Sex: Female
  Weight: 60 kg

DRUGS (8)
  1. HUMIRA [Suspect]
     Indication: PRODUCT USED FOR UNKNOWN INDICATION
     Dates: start: 2004
  2. HUMIRA [Suspect]
     Dates: start: 201202
  3. METHOTREXATE [Concomitant]
     Indication: RHEUMATOID ARTHRITIS
     Route: 048
     Dates: start: 1995
  4. MELOXICAM [Concomitant]
     Indication: RHEUMATOID ARTHRITIS
     Route: 048
  5. CODEINE [Concomitant]
     Indication: RHEUMATOID ARTHRITIS
     Route: 048
  6. EVOREL PATCHES [Concomitant]
     Indication: HORMONE REPLACEMENT THERAPY
     Route: 062
  7. PREDNISOLONE [Concomitant]
     Indication: RHEUMATOID ARTHRITIS
     Dates: start: 1994
  8. ALENDRONIC ACID [Concomitant]
     Indication: PRODUCT USED FOR UNKNOWN INDICATION

REACTIONS (4)
  - Cervical dysplasia [Recovered/Resolved]
  - Infection [Recovered/Resolved]
  - Cervix carcinoma stage I [Recovered/Resolved]
  - Fatigue [Unknown]
